FAERS Safety Report 14296335 (Version 1)
Quarter: 2017Q4

REPORT INFORMATION
  Report Type: Spontaneous
  Country: ES (occurrence: ES)
  Receive Date: 20171218
  Receipt Date: 20171218
  Transmission Date: 20180321
  Serious: Yes (Other)
  Sender: FDA-Public Use
  Company Number: ES-PFIZER INC-2017537304

PATIENT
  Age: 49 Year
  Sex: Female

DRUGS (4)
  1. ENALAPRIL CINFA [Suspect]
     Active Substance: ENALAPRIL
     Dosage: 5 MG, 1X/DAY
     Route: 048
     Dates: start: 20171013, end: 201711
  2. PAROXETINA CINFA [Suspect]
     Active Substance: PAROXETINE HYDROCHLORIDE
     Dosage: 20 MG, 1X/DAY
     Route: 048
     Dates: start: 20171013
  3. LORAZEPAM CINFA [Suspect]
     Active Substance: LORAZEPAM
     Dosage: 1.5 MG, 1X/DAY
     Route: 048
     Dates: start: 20171013
  4. TRANKIMAZIN [Suspect]
     Active Substance: ALPRAZOLAM
     Dosage: 0.5 MG, 1X/DAY
     Route: 048
     Dates: start: 20171013

REACTIONS (1)
  - Bradycardia [Recovered/Resolved]

NARRATIVE: CASE EVENT DATE: 20171016
